FAERS Safety Report 13350141 (Version 2)
Quarter: 2017Q2

REPORT INFORMATION
  Report Type: Spontaneous
  Country: CN (occurrence: CN)
  Receive Date: 20170320
  Receipt Date: 20170426
  Transmission Date: 20170830
  Serious: Yes (Hospitalization, Other)
  Sender: FDA-Public Use
  Company Number: CN-JNJFOC-20170313976

PATIENT
  Age: 65 Year
  Sex: Male
  Weight: 60 kg

DRUGS (8)
  1. HALOPERIDOL. [Interacting]
     Active Substance: HALOPERIDOL
     Indication: VOMITING
     Route: 048
  2. LORAZEPAM. [Interacting]
     Active Substance: LORAZEPAM
     Indication: VOMITING
     Route: 048
  3. DIPHENHYDRAMINE HYDROCHLORIDE. [Interacting]
     Active Substance: DIPHENHYDRAMINE HYDROCHLORIDE
     Indication: VOMITING
     Route: 048
  4. FENTANYL. [Suspect]
     Active Substance: FENTANYL
     Indication: ANALGESIC THERAPY
     Route: 062
     Dates: start: 201507
  5. PREGABALIN. [Interacting]
     Active Substance: PREGABALIN
     Indication: ANALGESIC THERAPY
     Route: 048
     Dates: start: 201507
  6. TROPISETRON HYDROCHLORIDE [Interacting]
     Active Substance: TROPISETRON HYDROCHLORIDE
     Indication: VOMITING
     Route: 042
  7. MORPHINE HYDROCHLORIDE [Interacting]
     Active Substance: MORPHINE HYDROCHLORIDE
     Indication: PAIN
     Route: 065
  8. DICLOFENAC SODIUM. [Interacting]
     Active Substance: DICLOFENAC SODIUM
     Indication: PAIN
     Route: 048

REACTIONS (12)
  - Aspartate aminotransferase increased [Unknown]
  - Alanine aminotransferase increased [Unknown]
  - Blood alkaline phosphatase increased [Unknown]
  - Product use in unapproved indication [Unknown]
  - Delirium [Recovered/Resolved]
  - Musculoskeletal stiffness [Recovering/Resolving]
  - Off label use [Unknown]
  - Dyspnoea [Recovered/Resolved]
  - Drug interaction [Unknown]
  - Pain [Recovering/Resolving]
  - Drug level increased [Unknown]
  - Gamma-glutamyltransferase increased [Unknown]
